FAERS Safety Report 7333972-6 (Version None)
Quarter: 2011Q1

REPORT INFORMATION
  Report Type: 
  Country: None (occurrence: None)
  Receive Date: 20110301
  Receipt Date: 20110301
  Transmission Date: 20110831
  Serious: Yes (Hospitalization)
  Sender: FDA-Public Use
  Company Number: None

PATIENT
  Age: 65 Year
  Sex: Female
  Weight: 68.0396 kg

DRUGS (1)
  1. REMINYL 100MG LILLY [Suspect]
     Dosage: 1 TAB PO EVERY DAY PO
     Route: 048
     Dates: start: 20110206, end: 20110228

REACTIONS (3)
  - HYPOGLYCAEMIA [None]
  - DRUG DISPENSING ERROR [None]
  - MEDICATION ERROR [None]
